FAERS Safety Report 9490769 (Version 1)
Quarter: 2013Q3

REPORT INFORMATION
  Report Type: Spontaneous
  Country: BR (occurrence: BR)
  Receive Date: 20130830
  Receipt Date: 20130830
  Transmission Date: 20140515
  Serious: Yes (Other)
  Sender: FDA-Public Use
  Company Number: BR-JNJFOC-20130814256

PATIENT
  Age: 45 Year
  Sex: Female
  Weight: 97.05 kg

DRUGS (7)
  1. XARELTO [Suspect]
     Indication: PULMONARY EMBOLISM
     Route: 048
     Dates: start: 20130719
  2. DIANE [Suspect]
     Indication: CONTRACEPTION
     Route: 048
     Dates: start: 201304, end: 2013
  3. CYPROTERONE ACETATE W/ETHINYLESTRADIOL [Suspect]
     Indication: CONTRACEPTION
     Route: 065
  4. CYPROTERONE ACETATE W/ETHINYLESTRADIOL [Suspect]
     Indication: CONTRACEPTION
     Route: 065
  5. SIBUTRAMINE [Concomitant]
     Indication: OBESITY
     Route: 048
     Dates: start: 201304
  6. CAPTOPRIL [Concomitant]
     Indication: BLOOD PRESSURE MANAGEMENT
     Route: 048
     Dates: start: 20130520
  7. OMEPRAZOLE [Concomitant]
     Indication: PROPHYLAXIS AGAINST GASTROINTESTINAL ULCER
     Route: 048
     Dates: start: 20130520

REACTIONS (2)
  - Pulmonary embolism [Not Recovered/Not Resolved]
  - International normalised ratio abnormal [Not Recovered/Not Resolved]
